FAERS Safety Report 8037263-X (Version None)
Quarter: 2012Q1

REPORT INFORMATION
  Report Type: 
  Country: None (occurrence: None)
  Receive Date: 20120111
  Receipt Date: 20120105
  Transmission Date: 20120608
  Serious: Yes (Hospitalization)
  Sender: FDA-Public Use
  Company Number: GB-BAYER-2012-002159

PATIENT
  Age: 2 Year
  Sex: Male
  Weight: 13.9 kg

DRUGS (5)
  1. RANITIDINE [Concomitant]
  2. SPIRONOLACTONE [Concomitant]
  3. NAPROXEN SODIUM [Suspect]
     Indication: BARTTER'S SYNDROME
     Dosage: 60 MG, BID
     Route: 048
     Dates: start: 20110518, end: 20111226
  4. POTASSIUM CHLORIDE [Concomitant]
  5. SODIUM CHLORIDE [Concomitant]

REACTIONS (1)
  - MENINGITIS ASEPTIC [None]
